FAERS Safety Report 21435724 (Version 4)
Quarter: 2022Q4

REPORT INFORMATION
  Report Type: Report from Study
  Country: US (occurrence: US)
  Receive Date: 20221010
  Receipt Date: 20221102
  Transmission Date: 20230113
  Serious: Yes (Hospitalization, Other)
  Sender: FDA-Public Use
  Company Number: US-AGIOS-2208US03146

PATIENT
  Sex: Female

DRUGS (6)
  1. MITAPIVAT [Suspect]
     Active Substance: MITAPIVAT
     Indication: Pyruvate kinase deficiency anaemia
     Dosage: 50 MILLIGRAM, BID
     Route: 048
     Dates: start: 20220323
  2. MITAPIVAT [Suspect]
     Active Substance: MITAPIVAT
     Dosage: 50 MILLIGRAM, BID
     Route: 048
     Dates: start: 20220621
  3. MITAPIVAT [Suspect]
     Active Substance: MITAPIVAT
     Dosage: 5 MILLIGRAM, BID
     Route: 048
     Dates: start: 20220321
  4. TACROLIMUS [Concomitant]
     Active Substance: TACROLIMUS
     Indication: Product used for unknown indication
  5. VANCOMYCIN [Concomitant]
     Active Substance: VANCOMYCIN
     Indication: Product used for unknown indication
     Dosage: 125 MILLIGRAM, QID
  6. PANTOPRAZOLE [Concomitant]
     Active Substance: PANTOPRAZOLE
     Indication: Product used for unknown indication
     Dosage: TWICE DAILY

REACTIONS (7)
  - Gastrointestinal haemorrhage [Unknown]
  - Therapy non-responder [Unknown]
  - Liver tenderness [Unknown]
  - Hepatomegaly [Unknown]
  - Product dose omission issue [Unknown]
  - Pain in extremity [Unknown]
  - Haemoglobin decreased [Unknown]
